FAERS Safety Report 18105582 (Version 4)
Quarter: 2020Q4

REPORT INFORMATION
  Report Type: Report from Study
  Country: NL (occurrence: NL)
  Receive Date: 20200803
  Receipt Date: 20201030
  Transmission Date: 20210113
  Serious: Yes (Other)
  Sender: FDA-Public Use
  Company Number: NL-MYLANLABS-2020M1068353

PATIENT
  Age: 70 Year
  Sex: Female

DRUGS (19)
  1. XGEVA [Suspect]
     Active Substance: DENOSUMAB
     Dosage: 120 MILLIGRAM, MONTHLY(120 MILLIGRAM/1,7ML, Q4WK)
     Route: 058
  2. CANNABIS [Concomitant]
     Active Substance: CANNABIS SATIVA SUBSP. INDICA TOP
     Dosage: 1 DF, QD (20 MILLIGRAM PER MILLILITRE, QD)
  3. VASELINE CETOMACROGOL CREAM [Concomitant]
     Dosage: 10 PERCENT, BID(10 PERCENT, 2XD)
  4. XGEVA [Suspect]
     Active Substance: DENOSUMAB
     Dosage: 120 MILLIGRAM, MONTHLY(120 MILLIGRAM/1,7ML, Q4WK)
     Route: 058
     Dates: start: 20190423
  5. MICONAZOL                          /00310801/ [Concomitant]
     Active Substance: MICONAZOLE
     Dosage: 20 MILLIGRAM PER GRAM, 2D
  6. LETROZOL [Concomitant]
     Active Substance: LETROZOLE
     Dosage: 2.5 MILLIGRAM, QD
  7. OMEPRAZOLE. [Concomitant]
     Active Substance: OMEPRAZOLE
     Dosage: 20 MILLIGRAM, QD (1D1T)
  8. TRAVOPROST. [Concomitant]
     Active Substance: TRAVOPROST
     Dosage: 40 MICROGRAM PER MILLIGRAM (FL 2,5ML), QD 1D1DR
  9. TRAVOPROST. [Concomitant]
     Active Substance: TRAVOPROST
     Dosage: 1 DF, QD (40 MICROGRAM PER MILLIGRAM (FL 2,5ML), QD 1D1DR)
  10. ROSUVASTATIN. [Suspect]
     Active Substance: ROSUVASTATIN
     Indication: PRODUCT USED FOR UNKNOWN INDICATION
     Dosage: 20 MILLIGRAM, QD, (AS CA-SALT), 1D1T
     Route: 065
  11. XGEVA [Suspect]
     Active Substance: DENOSUMAB
     Indication: PROPHYLAXIS
     Dosage: 120 MILLIGRAM, MONTHLY(120 MILLIGRAM/1,7ML, Q4WK)
     Route: 058
  12. CANNABIS [Concomitant]
     Active Substance: CANNABIS SATIVA SUBSP. INDICA TOP
     Dosage: 20 MILLIGRAM PER MILLILITRE, QD
  13. CALCIUM CARBONATE W/COLECALCIFEROL [Concomitant]
     Active Substance: CALCIUM CARBONATE\CHOLECALCIFEROL
     Dosage: 1.25 800IE (500MG CA), QD
  14. XGEVA [Suspect]
     Active Substance: DENOSUMAB
     Dosage: 120 MILLIGRAM, MONTHLY(120 MILLIGRAM/1,7ML, Q4WK)
     Route: 058
  15. CALCIUM CARBONATE W/COLECALCIFEROL [Concomitant]
     Active Substance: CALCIUM CARBONATE\CHOLECALCIFEROL
     Dosage: 1.25 800IE (500MG CA), QD (1D1T)
  16. MIZOLASTINE [Concomitant]
     Active Substance: MIZOLASTINE
     Dosage: 10 MILLIGRAM, QD, 1T
  17. LIDOCAINE. [Concomitant]
     Active Substance: LIDOCAINE
     Dosage: 1 DOSAGE FORM, QD(UNK UNK, QD)
     Route: 054
  18. TRIAMCINOLONACETONIDE [Concomitant]
     Active Substance: TRIAMCINOLONE ACETONIDE
     Dosage: 1 DOSAGE FORM, QD(UNK UNK, QD)
  19. XGEVA [Suspect]
     Active Substance: DENOSUMAB
     Dosage: 120 MILLIGRAM, MONTHLY(120 MILLIGRAM/1,7ML, Q4WK)
     Route: 058
     Dates: start: 20190326

REACTIONS (8)
  - Injection site pain [Unknown]
  - Arthralgia [Not Recovered/Not Resolved]
  - Malaise [Unknown]
  - Pain in extremity [Not Recovered/Not Resolved]
  - Dizziness [Unknown]
  - Arthralgia [Unknown]
  - Discomfort [Unknown]
  - Cancer pain [Unknown]

NARRATIVE: CASE EVENT DATE: 2019
